FAERS Safety Report 4847250-8 (Version None)
Quarter: 2005Q4

REPORT INFORMATION
  Report Type: 
  Country: None (occurrence: None)
  Receive Date: 20051207
  Receipt Date: 20051125
  Transmission Date: 20060501
  Serious: Yes (Hospitalization)
  Sender: FDA-Public Use
  Company Number: DE-GLAXOSMITHKLINE-B0401777A

PATIENT
  Age: 55 Year
  Sex: Male
  Weight: 67 kg

DRUGS (2)
  1. TOPOTECAN [Suspect]
     Route: 042
     Dates: start: 20050912, end: 20050916
  2. CISPLATIN [Suspect]
     Route: 042
     Dates: start: 20050916, end: 20050916

REACTIONS (2)
  - HAEMATEMESIS [None]
  - VOMITING [None]
